FAERS Safety Report 16629650 (Version 2)
Quarter: 2019Q3

REPORT INFORMATION
  Report Type: Spontaneous
  Country: US (occurrence: US)
  Receive Date: 20190725
  Receipt Date: 20190817
  Transmission Date: 20191004
  Serious: Yes (Other)
  Sender: FDA-Public Use
  Company Number: US-BION-008147

PATIENT
  Sex: Female

DRUGS (1)
  1. EQUATE NAPROXEN SODIUM [Suspect]
     Active Substance: NAPROXEN SODIUM
     Indication: HEADACHE
     Dosage: 2 SOFTGELS ONCE
     Route: 048
     Dates: start: 20190716

REACTIONS (4)
  - Product physical consistency issue [Unknown]
  - Product taste abnormal [Unknown]
  - Poor quality product administered [Not Recovered/Not Resolved]
  - Choking [Unknown]

NARRATIVE: CASE EVENT DATE: 20190716
